FAERS Safety Report 9249323 (Version 3)
Quarter: 2018Q1

REPORT INFORMATION
  Report Type: Spontaneous
  Country: CA (occurrence: CA)
  Receive Date: 20130423
  Receipt Date: 20180317
  Transmission Date: 20180509
  Serious: Yes (Death, Other)
  Sender: FDA-Public Use
  Company Number: CA-009507513-1304CAN013315

PATIENT
  Age: 4 Year
  Sex: Male

DRUGS (12)
  1. CANCIDAS [Suspect]
     Active Substance: CASPOFUNGIN ACETATE
     Dosage: UNK
     Route: 065
  2. AMPHOTERICIN B. [Suspect]
     Active Substance: AMPHOTERICIN B
     Indication: ASPERGILLUS INFECTION
  3. CYTARABINE. [Concomitant]
     Active Substance: CYTARABINE
     Indication: IMMUNOSUPPRESSION
     Dosage: POWDER FOR SOLUTION INTRATHECAL
     Route: 065
  4. POSANOL [Suspect]
     Active Substance: POSACONAZOLE
     Indication: CENTRAL NERVOUS SYSTEM FUNGAL INFECTION
     Dosage: UNK
     Route: 065
  5. VORICONAZOLE. [Suspect]
     Active Substance: VORICONAZOLE
     Indication: CENTRAL NERVOUS SYSTEM FUNGAL INFECTION
     Route: 065
  6. VORICONAZOLE. [Suspect]
     Active Substance: VORICONAZOLE
     Indication: ASPERGILLUS INFECTION
  7. METHYLPREDNISOLONE. [Concomitant]
     Active Substance: METHYLPREDNISOLONE
     Indication: IMMUNOSUPPRESSION
     Dosage: UNK
     Route: 065
  8. AMPHOTERICIN B. [Suspect]
     Active Substance: AMPHOTERICIN B
     Indication: CENTRAL NERVOUS SYSTEM FUNGAL INFECTION
     Route: 065
  9. DAUNORUBICIN [Concomitant]
     Active Substance: DAUNORUBICIN
     Indication: IMMUNOSUPPRESSION
     Dosage: UNK
     Route: 065
  10. POSANOL [Suspect]
     Active Substance: POSACONAZOLE
     Indication: ASPERGILLUS INFECTION
  11. ETOPOSIDE. [Concomitant]
     Active Substance: ETOPOSIDE
     Indication: IMMUNOSUPPRESSION
     Dosage: UNK
     Route: 065
  12. CANCIDAS [Suspect]
     Active Substance: CASPOFUNGIN ACETATE
     Indication: ANTIFUNGAL PROPHYLAXIS
     Dosage: UNK
     Route: 065

REACTIONS (4)
  - Aspergillus infection [Fatal]
  - Drug ineffective [Fatal]
  - Central nervous system fungal infection [Fatal]
  - Drug resistance [Fatal]
